FAERS Safety Report 24565026 (Version 2)
Quarter: 2024Q4

REPORT INFORMATION
  Report Type: Report from Study
  Country: US (occurrence: US)
  Receive Date: 20241030
  Receipt Date: 20241205
  Transmission Date: 20250114
  Serious: Yes (Hospitalization, Other)
  Sender: AMGEN
  Company Number: US-AMGEN-USASL2024197777

PATIENT
  Sex: Female

DRUGS (3)
  1. LUMAKRAS [Suspect]
     Active Substance: SOTORASIB
     Indication: Lung neoplasm malignant
     Dosage: UNK
     Route: 065
  2. LUMAKRAS [Suspect]
     Active Substance: SOTORASIB
     Indication: Bone cancer
  3. LUMAKRAS [Suspect]
     Active Substance: SOTORASIB
     Indication: Lymphoma

REACTIONS (7)
  - Dehydration [Unknown]
  - Lung neoplasm malignant [Unknown]
  - Lymphoma [Unknown]
  - Bone cancer [Unknown]
  - Diarrhoea [Unknown]
  - Illness [Unknown]
  - Feeling abnormal [Unknown]
